FAERS Safety Report 24615106 (Version 3)
Quarter: 2025Q1

REPORT INFORMATION
  Report Type: Spontaneous
  Country: CA (occurrence: CA)
  Receive Date: 20241113
  Receipt Date: 20250205
  Transmission Date: 20250409
  Serious: Yes (Hospitalization, Other)
  Sender: VERTEX
  Company Number: CA-VERTEX PHARMACEUTICALS-2024-017553

PATIENT
  Sex: Female
  Weight: 34 kg

DRUGS (6)
  1. TRIKAFTA [Suspect]
     Active Substance: ELEXACAFTOR\IVACAFTOR\TEZACAFTOR
     Indication: Cystic fibrosis
     Route: 048
     Dates: start: 2022
  2. POLYETHYLENE GLYCOLS [Concomitant]
     Active Substance: POLYETHYLENE GLYCOLS
     Indication: Constipation
     Dosage: 17 G; BID
  3. FLOVENT [Concomitant]
     Active Substance: FLUTICASONE PROPIONATE
     Dosage: PUFFS
  4. VENTOLIN [Concomitant]
     Active Substance: ALBUTEROL SULFATE
     Dosage: UNK, BID
     Route: 055
  5. CREON [Concomitant]
     Active Substance: PANCRELIPASE AMYLASE\PANCRELIPASE LIPASE\PANCRELIPASE PROTEASE
  6. KEFLEX [Concomitant]
     Active Substance: CEPHALEXIN

REACTIONS (10)
  - Syncope [Unknown]
  - Petit mal epilepsy [Recovering/Resolving]
  - Injury [Recovered/Resolved]
  - Feeling abnormal [Unknown]
  - Incontinence [Unknown]
  - Sweat test abnormal [Unknown]
  - Dehydration [Unknown]
  - Dizziness [Unknown]
  - Abdominal pain [Unknown]
  - Headache [Unknown]

NARRATIVE: CASE EVENT DATE: 20240101
